FAERS Safety Report 7338264-7 (Version None)
Quarter: 2011Q1

REPORT INFORMATION
  Report Type: 
  Country: None (occurrence: None)
  Receive Date: 20110308
  Receipt Date: 20110225
  Transmission Date: 20110831
  Serious: Yes (Other)
  Sender: FDA-Public Use
  Company Number: JP-PFIZER INC-2011049490

PATIENT
  Age: 55 Year
  Sex: Male

DRUGS (1)
  1. LIPITOR [Suspect]
     Dosage: 5 MG, 1X/DAY

REACTIONS (4)
  - CEREBRAL MICROHAEMORRHAGE [None]
  - DIZZINESS [None]
  - TINNITUS [None]
  - VISUAL IMPAIRMENT [None]
